FAERS Safety Report 9302016 (Version 1)
Quarter: 2013Q2

REPORT INFORMATION
  Report Type: Spontaneous
  Country: US (occurrence: US)
  Receive Date: 20130521
  Receipt Date: 20130521
  Transmission Date: 20140414
  Serious: Yes (Other)
  Sender: FDA-Public Use
  Company Number: CHPA2013US008420

PATIENT
  Age: 73 Year
  Sex: Female

DRUGS (1)
  1. TRANSDERM SCOP [Suspect]
     Indication: PROPHYLAXIS AGAINST MOTION SICKNESS
     Dosage: 1 DF, UNK
     Route: 062
     Dates: start: 20130505, end: 20130511

REACTIONS (7)
  - Urticaria [Not Recovered/Not Resolved]
  - Pruritus [Recovered/Resolved]
  - Pain of skin [Recovered/Resolved]
  - Rash [Not Recovered/Not Resolved]
  - Headache [Unknown]
  - Dry mouth [Recovering/Resolving]
  - Incorrect drug administration duration [Unknown]
